FAERS Safety Report 20157439 (Version 1)
Quarter: 2021Q4

REPORT INFORMATION
  Report Type: Spontaneous
  Country: US (occurrence: US)
  Receive Date: 20211207
  Receipt Date: 20211207
  Transmission Date: 20220303
  Serious: No
  Sender: FDA-Public Use
  Company Number: US-IBSA PHARMA INC.-2021IBS000014

PATIENT

DRUGS (1)
  1. TIROSINT [Suspect]
     Active Substance: LEVOTHYROXINE SODIUM
     Indication: Thyroid hormone replacement therapy
     Dosage: 100 ?G, UNK
     Route: 048

REACTIONS (6)
  - Weight increased [Recovering/Resolving]
  - Trichorrhexis [Recovering/Resolving]
  - Feeling abnormal [Recovering/Resolving]
  - Blood test abnormal [Unknown]
  - Drug ineffective [Unknown]
  - Product quality issue [Unknown]
